FAERS Safety Report 14314760 (Version 3)
Quarter: 2018Q1

REPORT INFORMATION
  Report Type: Spontaneous
  Country: US (occurrence: US)
  Receive Date: 20171221
  Receipt Date: 20180215
  Transmission Date: 20180509
  Serious: Yes (Other)
  Sender: FDA-Public Use
  Company Number: US-PFIZER INC-2017540563

PATIENT
  Age: 69 Year
  Sex: Male
  Weight: 79.38 kg

DRUGS (7)
  1. LYRICA [Suspect]
     Active Substance: PREGABALIN
     Dosage: 75 MG, 2X/DAY
     Dates: start: 20170913
  2. LYRICA [Suspect]
     Active Substance: PREGABALIN
     Indication: BACK PAIN
     Dosage: 25 MG, 2X/DAY
     Dates: start: 201705
  3. LYRICA [Suspect]
     Active Substance: PREGABALIN
     Indication: NEURALGIA
     Dosage: 50 MG, UNK
  4. LUTEIN [Concomitant]
     Active Substance: LUTEIN
     Indication: VITAMIN A DEFICIENCY EYE DISORDER
     Dosage: 20 MG, 2X/DAY (TAKING 2 YEARS)
  5. OCUVITE [Concomitant]
     Active Substance: VITAMINS
     Indication: VITAMIN A DEFICIENCY EYE DISORDER
     Dosage: UNK (TAKING 2 YEARS)
  6. TRAMADOL. [Concomitant]
     Active Substance: TRAMADOL
     Indication: BACK PAIN
     Dosage: 50 MG, AS NEEDED
  7. LYRICA [Suspect]
     Active Substance: PREGABALIN
     Dosage: 75 MG, UNK

REACTIONS (6)
  - Macular degeneration [Unknown]
  - Condition aggravated [Unknown]
  - Visual acuity reduced [Unknown]
  - Drug ineffective [Recovered/Resolved]
  - Cataract [Unknown]
  - Vision blurred [Not Recovered/Not Resolved]

NARRATIVE: CASE EVENT DATE: 201705
